FAERS Safety Report 24271054 (Version 1)
Quarter: 2024Q3

REPORT INFORMATION
  Report Type: Spontaneous
  Country: US (occurrence: US)
  Receive Date: 20240831
  Receipt Date: 20240831
  Transmission Date: 20241017
  Serious: No
  Sender: BAYER
  Company Number: US-BAYER-2024A123411

PATIENT
  Age: 42 Year
  Sex: Female

DRUGS (1)
  1. KYLEENA [Suspect]
     Active Substance: LEVONORGESTREL
     Indication: Intrauterine contraception
     Dosage: 17.5?G/DAY
     Route: 015
     Dates: start: 201904

REACTIONS (5)
  - Abdominal pain upper [None]
  - Abdominal pain upper [None]
  - Abdominal pain upper [None]
  - Abdominal pain upper [None]
  - Abdominal pain upper [None]

NARRATIVE: CASE EVENT DATE: 20240803
